FAERS Safety Report 6787948-8 (Version None)
Quarter: 2010Q2

REPORT INFORMATION
  Report Type: 
  Country: None (occurrence: None)
  Receive Date: 20100621
  Receipt Date: 20100604
  Transmission Date: 20101027
  Serious: Yes (Other)
  Sender: FDA-Public Use
  Company Number: Y-10-018

PATIENT
  Age: 20 Month
  Sex: Male
  Weight: 10.8863 kg

DRUGS (3)
  1. ALBUTEROL SULFATE AUTOHALER [Suspect]
     Indication: HYPERSENSITIVITY
     Dosage: INHALATION VIA NEBULIZER
     Route: 055
     Dates: start: 20100501
  2. SINGULAIR [Concomitant]
  3. MULTI-VITAMIN [Concomitant]

REACTIONS (2)
  - CYANOSIS [None]
  - PERIPHERAL COLDNESS [None]
